FAERS Safety Report 9308850 (Version 1)
Quarter: 2013Q2

REPORT INFORMATION
  Report Type: Report from Study
  Country: US (occurrence: US)
  Receive Date: 20130524
  Receipt Date: 20130524
  Transmission Date: 20140414
  Serious: Yes (Hospitalization, Other)
  Sender: FDA-Public Use
  Company Number: US-GENZYME-CAMP-1002880

PATIENT
  Age: 44 Year
  Sex: Male
  Weight: 81.2 kg

DRUGS (28)
  1. CAMPATH [Suspect]
     Indication: CHRONIC GRAFT VERSUS HOST DISEASE
     Dosage: 3 MG, 3X/W (FOR 1 WEEK)
     Route: 042
     Dates: start: 20080205
  2. CAMPATH [Suspect]
     Dosage: 3 MG, 1X/W (FOR ADDITIONAL 3 WEEKS)
     Route: 042
  3. CALCINEURIN INHIBITORS [Concomitant]
     Indication: CHRONIC GRAFT VERSUS HOST DISEASE
     Dosage: UNK
     Route: 065
  4. SIROLIMUS [Concomitant]
     Indication: CHRONIC GRAFT VERSUS HOST DISEASE
     Dosage: UNK
     Route: 065
  5. PREDNISONE [Concomitant]
     Indication: CHRONIC GRAFT VERSUS HOST DISEASE
     Dosage: 0.6 MG, UNK
     Route: 065
  6. PREDNISONE [Concomitant]
     Dosage: 20 MG, UNK (AT ONE YEAR)
     Route: 065
  7. PREDNISONE [Concomitant]
     Dosage: 5 MG, QD
     Route: 065
  8. SODIUM CHLORIDE [Concomitant]
     Indication: CHRONIC GRAFT VERSUS HOST DISEASE
     Dosage: UNK
     Route: 065
  9. DIPHENHYDRAMINE [Concomitant]
     Indication: PREMEDICATION
     Dosage: UNK
     Route: 065
  10. ACETAMINOPHEN [Concomitant]
     Indication: PREMEDICATION
     Dosage: UNK
     Route: 065
  11. ANTIMICROBIALS [Concomitant]
     Indication: ANTIFUNGAL PROPHYLAXIS
     Dosage: UNK
     Route: 065
  12. ANTIMICROBIALS [Concomitant]
     Indication: ANTIVIRAL PROPHYLAXIS
  13. ANTIMICROBIALS [Concomitant]
     Indication: ANTIVIRAL PROPHYLAXIS
  14. ANTIFUNGALS [Concomitant]
     Indication: PROPHYLAXIS
     Dosage: UNK
     Route: 065
  15. EXTRACORPOREAL PHOTOPHERESIS [Concomitant]
     Indication: GRAFT VERSUS HOST DISEASE
     Dosage: UNK
     Route: 065
  16. IMATINIB [Concomitant]
     Indication: GRAFT VERSUS HOST DISEASE
     Dosage: UNK
     Route: 065
  17. MYCOPHENOLATE MOFETIL [Concomitant]
     Indication: PRODUCT USED FOR UNKNOWN INDICATION
     Dosage: UNK (ONE YEAR MEDICATION CHANGE)
     Route: 065
  18. AZITHROMYCIN [Concomitant]
     Indication: PROPHYLAXIS
     Dosage: UNK
     Route: 065
  19. BACTRIM [Concomitant]
     Indication: PROPHYLAXIS
     Dosage: UNK
     Route: 065
  20. OMNICEF [Concomitant]
     Indication: PROPHYLAXIS
     Dosage: UNK
     Route: 065
  21. CIPROFLOXACIN [Concomitant]
     Indication: PROPHYLAXIS
     Dosage: UNK
     Route: 065
  22. ALBUTEROL [Concomitant]
     Indication: PRODUCT USED FOR UNKNOWN INDICATION
     Dosage: UNK
     Route: 065
  23. SINGULAIR [Concomitant]
     Indication: PRODUCT USED FOR UNKNOWN INDICATION
     Dosage: UNK
     Route: 065
  24. TACROLIMUS [Concomitant]
     Indication: IMMUNOSUPPRESSION
     Dosage: UNK
     Route: 065
  25. RAPAMYCIN [Concomitant]
     Indication: IMMUNOSUPPRESSION
     Dosage: UNK
     Route: 065
  26. ACYCLOVIR [Concomitant]
     Indication: PROPHYLAXIS
     Dosage: UNK
     Route: 065
  27. LASIX [Concomitant]
     Indication: PRODUCT USED FOR UNKNOWN INDICATION
     Dosage: UNK
     Route: 065
  28. GLEEVAC [Concomitant]
     Indication: CHRONIC GRAFT VERSUS HOST DISEASE
     Dosage: UNK
     Route: 065

REACTIONS (4)
  - Bronchiectasis [Not Recovered/Not Resolved]
  - Pneumothorax [Unknown]
  - Pneumonia haemophilus [Recovered/Resolved with Sequelae]
  - Haemoptysis [Unknown]
